FAERS Safety Report 23475585 (Version 1)
Quarter: 2024Q1

REPORT INFORMATION
  Report Type: Report from Study
  Country: US (occurrence: US)
  Receive Date: 20240204
  Receipt Date: 20240204
  Transmission Date: 20240409
  Serious: No
  Sender: FDA-Public Use
  Company Number: US-EXELIXIS-CABO-23060196

PATIENT
  Age: 56 Year
  Sex: Female

DRUGS (7)
  1. CABOMETYX [Suspect]
     Active Substance: CABOZANTINIB S-MALATE
     Indication: Renal cancer
     Dosage: 60 MG, QD
     Dates: start: 20230106
  2. CABOMETYX [Suspect]
     Active Substance: CABOZANTINIB S-MALATE
     Dosage: 60 MG, QD
     Dates: end: 20230309
  3. UNSPECIFIED INGREDIENT [Concomitant]
     Active Substance: UNSPECIFIED INGREDIENT
  4. BENZONATATE [Concomitant]
     Active Substance: BENZONATATE
  5. HYDROCODONE BITARTRATE AND ACETAMINOPHEN [Concomitant]
     Active Substance: ACETAMINOPHEN\HYDROCODONE BITARTRATE
  6. MIRTAZAPINE [Concomitant]
     Active Substance: MIRTAZAPINE
  7. SENNA [Concomitant]
     Active Substance: SENNA LEAF\SENNOSIDES\SENNOSIDES A AND B

REACTIONS (15)
  - Skin exfoliation [Recovering/Resolving]
  - Acne [Recovered/Resolved]
  - Ear pain [Not Recovered/Not Resolved]
  - Fatigue [Not Recovered/Not Resolved]
  - Stomatitis [Not Recovered/Not Resolved]
  - Constipation [Recovered/Resolved]
  - Dry skin [Recovering/Resolving]
  - Blood pressure increased [Recovering/Resolving]
  - Dysphonia [Not Recovered/Not Resolved]
  - Taste disorder [Not Recovered/Not Resolved]
  - Cough [Recovering/Resolving]
  - Diarrhoea [Unknown]
  - Decreased appetite [Unknown]
  - Asthenia [Unknown]
  - Gait disturbance [Unknown]

NARRATIVE: CASE EVENT DATE: 20230101
